FAERS Safety Report 16759485 (Version 2)
Quarter: 2019Q3

REPORT INFORMATION
  Report Type: Spontaneous
  Country: FI (occurrence: FI)
  Receive Date: 20190830
  Receipt Date: 20190912
  Transmission Date: 20191005
  Serious: Yes (Hospitalization, Other)
  Sender: FDA-Public Use
  Company Number: FI-MYLANLABS-2019M1080959

PATIENT
  Age: 3 Year
  Sex: Male

DRUGS (2)
  1. IBUPROFEN. [Concomitant]
     Active Substance: IBUPROFEN
     Indication: OROPHARYNGEAL PAIN
     Dosage: UNK
     Route: 065
  2. ARIPIPRAZOLE. [Suspect]
     Active Substance: ARIPIPRAZOLE
     Indication: OROPHARYNGEAL PAIN
     Dosage: UNK
     Route: 065

REACTIONS (23)
  - Toxicity to various agents [Recovered/Resolved]
  - Hypotonia [Recovered/Resolved]
  - Eyelid ptosis [Recovered/Resolved]
  - Coma scale abnormal [Recovered/Resolved]
  - Poisoning [Recovered/Resolved]
  - Balance disorder [Recovered/Resolved]
  - Somnolence [Recovered/Resolved]
  - Urine output decreased [Recovered/Resolved]
  - Asthenia [Recovered/Resolved]
  - Dysphonia [Recovered/Resolved]
  - Encephalitis [Recovered/Resolved]
  - Decreased appetite [Recovered/Resolved]
  - Fatigue [Recovered/Resolved]
  - Pharyngeal erythema [Recovered/Resolved]
  - Dermatitis atopic [Recovered/Resolved]
  - Altered state of consciousness [Recovered/Resolved]
  - Pyrexia [Recovered/Resolved]
  - Accidental exposure to product by child [Recovered/Resolved]
  - Oliguria [Recovered/Resolved]
  - Abdominal tenderness [Recovered/Resolved]
  - Ataxia [Recovered/Resolved]
  - Blood albumin decreased [Recovered/Resolved]
  - Tremor [Recovered/Resolved]
